FAERS Safety Report 4607787-3 (Version None)
Quarter: 2005Q1

REPORT INFORMATION
  Report Type: 
  Country: None (occurrence: None)
  Receive Date: 20050314
  Receipt Date: 20050306
  Transmission Date: 20050727
  Serious: Yes (Other)
  Sender: FDA-Public Use
  Company Number: BE-GLAXOSMITHKLINE-B0374529A

PATIENT
  Age: 75 Year
  Sex: Male

DRUGS (1)
  1. SERETIDE [Suspect]
     Route: 055
     Dates: start: 20030101

REACTIONS (2)
  - HAEMATOMA [None]
  - SKIN ATROPHY [None]
